FAERS Safety Report 24251130 (Version 1)
Quarter: 2024Q3

REPORT INFORMATION
  Report Type: Spontaneous
  Country: US (occurrence: US)
  Receive Date: 20240826
  Receipt Date: 20240826
  Transmission Date: 20241017
  Serious: No
  Sender: ALKERMES
  Company Number: US-ALKERMES INC.-ALK-2024-002198

PATIENT
  Sex: Male

DRUGS (2)
  1. VIVITROL [Suspect]
     Active Substance: NALTREXONE
     Indication: Alcoholism
     Dosage: 380 MILLIGRAM, QMO
     Route: 030
     Dates: start: 201904
  2. GABAPENTIN [Suspect]
     Active Substance: GABAPENTIN
     Indication: Tremor
     Dosage: 300 MILLIGRAM, BID
     Route: 065

REACTIONS (1)
  - Tremor [Not Recovered/Not Resolved]
